FAERS Safety Report 8404509-5 (Version None)
Quarter: 2012Q2

REPORT INFORMATION
  Report Type: 
  Country: None (occurrence: None)
  Receive Date: 20120601
  Receipt Date: 20111117
  Transmission Date: 20120825
  Serious: No
  Sender: FDA-Public Use
  Company Number: US-NOVEN-11US003648

PATIENT
  Age: 11 Year
  Sex: Female
  Weight: 63.492 kg

DRUGS (4)
  1. SINGULAIR [Concomitant]
     Indication: SINUS DISORDER
     Route: 048
  2. DAYTRANA [Suspect]
     Indication: ATTENTION DEFICIT/HYPERACTIVITY DISORDER
     Dosage: 10 MG, QD
     Route: 062
     Dates: start: 20111110, end: 20111112
  3. FLONASE [Concomitant]
     Indication: SINUS DISORDER
     Route: 045
  4. CLARITIN                           /00413701/ [Concomitant]
     Indication: SINUS DISORDER
     Route: 048

REACTIONS (4)
  - HEADACHE [None]
  - APPLICATION SITE ERYTHEMA [None]
  - PRODUCT QUALITY ISSUE [None]
  - DRUG ADMINISTRATION ERROR [None]
